FAERS Safety Report 7462099-8 (Version None)
Quarter: 2011Q2

REPORT INFORMATION
  Report Type: 
  Country: None (occurrence: None)
  Receive Date: 20110506
  Receipt Date: 20101112
  Transmission Date: 20111010
  Serious: Yes (Other)
  Sender: FDA-Public Use
  Company Number: US-BAYER-201028192NA

PATIENT
  Sex: Female
  Weight: 88.435 kg

DRUGS (12)
  1. LORATADINE [Concomitant]
     Dates: start: 20081008
  2. IBUPROFEN [Concomitant]
     Route: 048
  3. NEXIUM [Concomitant]
     Route: 048
  4. BIAXIN [Concomitant]
  5. RANITIDINE [Concomitant]
     Dates: start: 20081001
  6. SINGULAIR [Concomitant]
     Indication: HYPERSENSITIVITY
  7. YAZ [Suspect]
     Indication: MENSTRUAL DISORDER
  8. ORPHENADRINE CITRATE [Concomitant]
  9. REGLAN [Concomitant]
  10. KEFLEX [Concomitant]
  11. YAZ [Suspect]
     Indication: CONTRACEPTION
     Route: 048
     Dates: start: 20081024, end: 20081129
  12. FLAGYL [Concomitant]

REACTIONS (3)
  - BURNING SENSATION [None]
  - CHOLECYSTITIS CHRONIC [None]
  - DYSPEPSIA [None]
